FAERS Safety Report 13245671 (Version 1)
Quarter: 2017Q1

REPORT INFORMATION
  Report Type: Other
  Country: JP (occurrence: JP)
  Receive Date: 20170217
  Receipt Date: 20170217
  Transmission Date: 20170428
  Serious: No
  Sender: FDA-Public Use
  Company Number: JP-LUPIN PHARMACEUTICALS INC.-2016-05732

PATIENT
  Age: 58 Year
  Sex: Male

DRUGS (3)
  1. QUININE [Suspect]
     Active Substance: QUININE
     Indication: CEREBRAL MALARIA
     Dosage: ADMINISTERED 3 TIMES ON THE FIRST DAY, TWICE ON DAY 2, AND?ONCE ON DAYS 3 THROUGH 7
     Route: 042
  2. HYDROCORTISONE. [Concomitant]
     Active Substance: HYDROCORTISONE
     Indication: SEPTIC SHOCK
     Route: 065
  3. CLINDAMYCIN. [Concomitant]
     Active Substance: CLINDAMYCIN
     Indication: CEREBRAL MALARIA
     Route: 065

REACTIONS (1)
  - Hypoglycaemia [Recovered/Resolved]
